FAERS Safety Report 22903079 (Version 3)
Quarter: 2023Q4

REPORT INFORMATION
  Report Type: Spontaneous
  Country: AU (occurrence: AU)
  Receive Date: 20230904
  Receipt Date: 20231031
  Transmission Date: 20240110
  Serious: Yes (Other)
  Sender: FDA-Public Use
  Company Number: AU-Gedeon Richter Plc.-2023_GR_008214

PATIENT
  Age: 51 Year
  Sex: Female
  Weight: 70 kg

DRUGS (3)
  1. CARIPRAZINE [Suspect]
     Active Substance: CARIPRAZINE
     Indication: Psychotic disorder
     Dosage: 1.5 MG
     Route: 048
     Dates: start: 20230726, end: 20230828
  2. CARIPRAZINE [Suspect]
     Active Substance: CARIPRAZINE
     Indication: Psychotic disorder
     Dosage: 1.5MG
     Route: 048
     Dates: start: 20220728, end: 20220819
  3. CARIPRAZINE [Suspect]
     Active Substance: CARIPRAZINE
     Indication: Psychotic disorder
     Dosage: UPTITRATED TO THE 3MG, ONE DAILY
     Route: 048
     Dates: start: 20220820, end: 20230725

REACTIONS (1)
  - Tardive dyskinesia [Recovered/Resolved]

NARRATIVE: CASE EVENT DATE: 20230726
